FAERS Safety Report 9565084 (Version 2)
Quarter: 2013Q4

REPORT INFORMATION
  Report Type: Spontaneous
  Country: CA (occurrence: CA)
  Receive Date: 20130930
  Receipt Date: 20131016
  Transmission Date: 20140711
  Serious: Yes (Other)
  Sender: FDA-Public Use
  Company Number: CA-PFIZER INC-2013277988

PATIENT
  Age: 64 Year
  Sex: Male

DRUGS (1)
  1. AURO-GABAPENTIN [Suspect]
     Indication: NEURALGIA
     Dosage: 300 MG, 3X/DAY
     Dates: start: 20130829, end: 201309

REACTIONS (3)
  - VIIth nerve paralysis [Recovering/Resolving]
  - Eye disorder [Recovering/Resolving]
  - Somnolence [Recovering/Resolving]
